FAERS Safety Report 8873162 (Version 3)
Quarter: 2012Q4

REPORT INFORMATION
  Report Type: Report from Study
  Country: CN (occurrence: CN)
  Receive Date: 20121030
  Receipt Date: 20121115
  Transmission Date: 20130627
  Serious: Yes (Other)
  Sender: FDA-Public Use
  Company Number: CN-GILEAD-2012-0063549

PATIENT
  Age: 20 Year
  Sex: Female

DRUGS (1)
  1. TENOFOVIR DISOPROXIL FUMARATE [Suspect]
     Indication: HEPATITIS B
     Dosage: 300 mg, UNK
     Route: 048
     Dates: start: 20120521, end: 20120917

REACTIONS (3)
  - Abortion spontaneous [Unknown]
  - Stillbirth [Unknown]
  - Cholestasis of pregnancy [Unknown]
